FAERS Safety Report 9782068 (Version 4)
Quarter: 2014Q1

REPORT INFORMATION
  Report Type: Report from Study
  Country: DE (occurrence: DE)
  Receive Date: 20131226
  Receipt Date: 20140129
  Transmission Date: 20141002
  Serious: Yes (Hospitalization)
  Sender: FDA-Public Use
  Company Number: DE-ROCHE-1088957

PATIENT
  Age: 64 Year
  Sex: Male
  Weight: 100 kg

DRUGS (1)
  1. RITUXIMAB [Suspect]
     Indication: RHEUMATOID ARTHRITIS
     Dosage: DATE OF LAST DOSE PRIOR TO EVENT: 09/FEB/2011
     Route: 042
     Dates: start: 20110126, end: 20110209

REACTIONS (3)
  - Dysphonia [Recovering/Resolving]
  - Dysphonia [Recovering/Resolving]
  - Reflux laryngitis [Unknown]
